FAERS Safety Report 7711067-7 (Version None)
Quarter: 2011Q3

REPORT INFORMATION
  Report Type: 
  Country: None (occurrence: None)
  Receive Date: 20110826
  Receipt Date: 20110816
  Transmission Date: 20111222
  Serious: Yes (Hospitalization)
  Sender: FDA-Public Use
  Company Number: US-BIOGENIDEC-2011BI022138

PATIENT
  Age: 46 Year
  Sex: Female

DRUGS (2)
  1. BACLOFEN [Concomitant]
     Indication: MUSCLE SPASTICITY
  2. TYSABRI [Suspect]
     Indication: MULTIPLE SCLEROSIS
     Route: 042
     Dates: start: 20110223, end: 20110427

REACTIONS (10)
  - URINARY TRACT INFECTION [None]
  - SPINAL COLUMN INJURY [None]
  - PULMONARY TUBERCULOSIS [None]
  - PYREXIA [None]
  - INFECTION [None]
  - VAGINAL INFECTION [None]
  - VULVOVAGINAL MYCOTIC INFECTION [None]
  - LACERATION [None]
  - WOUND [None]
  - DEPRESSION [None]
